FAERS Safety Report 6456972-7 (Version None)
Quarter: 2009Q4

REPORT INFORMATION
  Report Type: 
  Country: None (occurrence: None)
  Receive Date: 20091125
  Receipt Date: 20091119
  Transmission Date: 20100525
  Serious: Yes (Hospitalization, Other)
  Sender: FDA-Public Use
  Company Number: US-PFIZER INC-2009300385

PATIENT
  Sex: Female
  Weight: 59 kg

DRUGS (6)
  1. ZITHROMAX [Suspect]
     Indication: RESPIRATORY TRACT INFECTION
     Dosage: UNK
     Dates: start: 20060101
  2. XANAX [Suspect]
  3. METHYLPREDNISOLONE AND METHYLPREDNISOLONE ACETATE AND METHYLPREDNISOLO [Suspect]
  4. NOVANTRONE ^WYETH-AYERST^ [Suspect]
     Indication: MULTIPLE SCLEROSIS
     Dosage: 8 TO 10 MG/M2, MONTHLY FOR 3 MONTHS
     Route: 042
     Dates: start: 20050713, end: 20070112
  5. PROVIGIL [Suspect]
  6. B12 ^RECIP^ [Suspect]

REACTIONS (3)
  - CROHN'S DISEASE [None]
  - MEMORY IMPAIRMENT [None]
  - RESPIRATORY TRACT INFECTION [None]
